FAERS Safety Report 9042158 (Version 1)
Quarter: 2013Q1

REPORT INFORMATION
  Report Type: Report from Study
  Country: US (occurrence: US)
  Receive Date: 20130129
  Receipt Date: 20130129
  Transmission Date: 20140127
  Serious: No
  Sender: FDA-Public Use
  Company Number: US-ABBOTT-12P-163-0905210-00

PATIENT
  Age: 58 Year
  Sex: Male

DRUGS (5)
  1. HUMIRA 40 MG/0.8 ML PEN [Suspect]
     Indication: PSORIASIS
     Dates: start: 20080601, end: 200808
  2. HUMIRA 40 MG/0.8 ML PEN [Suspect]
     Dates: start: 20100210
  3. IBUPROFEN [Concomitant]
     Indication: PRODUCT USED FOR UNKNOWN INDICATION
     Dosage: ONE PILL DAILY
  4. CODEINE [Concomitant]
     Indication: PAIN
     Dates: end: 201201
  5. BACLOFEN [Concomitant]
     Indication: PAIN
     Dosage: 2-10 MG TID (TAKE 2 FOR PAIN)
     Dates: end: 201001

REACTIONS (2)
  - Psoriasis [Not Recovered/Not Resolved]
  - Rheumatoid arthritis [Unknown]
